FAERS Safety Report 4998084-5 (Version None)
Quarter: 2006Q2

REPORT INFORMATION
  Report Type: 
  Country: None (occurrence: None)
  Receive Date: 20060510
  Receipt Date: 20050105
  Transmission Date: 20061013
  Serious: Yes (Death, Hospitalization)
  Sender: FDA-Public Use
  Company Number: US-MERCK-0501USA00615

PATIENT
  Age: 76 Year
  Sex: Male
  Weight: 107 kg

DRUGS (2)
  1. VIOXX [Suspect]
     Indication: BACK PAIN
     Route: 048
     Dates: start: 20000701, end: 20001101
  2. VIOXX [Suspect]
     Indication: ARTHRITIS
     Route: 048
     Dates: start: 20000701, end: 20001101

REACTIONS (9)
  - ACUTE MYOCARDIAL INFARCTION [None]
  - AORTIC STENOSIS [None]
  - BACK DISORDER [None]
  - CARDIAC FAILURE CONGESTIVE [None]
  - CONSTIPATION [None]
  - CORONARY ARTERY DISEASE [None]
  - DEPRESSION [None]
  - GASTROINTESTINAL HAEMORRHAGE [None]
  - PNEUMONIA [None]
